FAERS Safety Report 25475347 (Version 1)
Quarter: 2025Q2

REPORT INFORMATION
  Report Type: Spontaneous
  Country: SI (occurrence: SI)
  Receive Date: 20250624
  Receipt Date: 20250624
  Transmission Date: 20250716
  Serious: Yes (Other)
  Sender: NOVARTIS
  Company Number: SI-002147023-NVSC2025SI096342

PATIENT
  Age: 52 Year
  Sex: Male

DRUGS (2)
  1. IMATINIB [Suspect]
     Active Substance: IMATINIB
     Indication: Chronic myeloid leukaemia
     Route: 065
     Dates: start: 2017, end: 202211
  2. NILOTINIB [Suspect]
     Active Substance: NILOTINIB
     Indication: Product used for unknown indication
     Route: 065
     Dates: start: 202211, end: 202504

REACTIONS (10)
  - Weight decreased [Unknown]
  - Gastrooesophageal reflux disease [Unknown]
  - Gastric polyps [Unknown]
  - Cytogenetic analysis abnormal [Unknown]
  - Drug ineffective [Unknown]
  - Acute myocardial infarction [Unknown]
  - Pain [Unknown]
  - Blood cholesterol increased [Unknown]
  - Influenza [Unknown]
  - Otitis media [Unknown]

NARRATIVE: CASE EVENT DATE: 20180401
